FAERS Safety Report 19191203 (Version 2)
Quarter: 2021Q2

REPORT INFORMATION
  Report Type: Spontaneous
  Country: US (occurrence: US)
  Receive Date: 20210428
  Receipt Date: 20210503
  Transmission Date: 20210717
  Serious: Yes (Other)
  Sender: FDA-Public Use
  Company Number: US-BAYER-2021-131070

PATIENT
  Sex: Female

DRUGS (1)
  1. CLIMARA PRO [Suspect]
     Active Substance: ESTRADIOL\LEVONORGESTREL
     Indication: POSTMENOPAUSE
     Dosage: UNK
     Route: 062
     Dates: start: 20210419

REACTIONS (2)
  - Device adhesion issue [None]
  - Uterine haemorrhage [None]
